FAERS Safety Report 5308226-X (Version None)
Quarter: 2007Q2

REPORT INFORMATION
  Report Type: 
  Country: None (occurrence: None)
  Receive Date: 20070426
  Receipt Date: 20070418
  Transmission Date: 20071010
  Serious: Yes (Other)
  Sender: FDA-Public Use
  Company Number: 2007UW07468

PATIENT

DRUGS (2)
  1. PULMICORT [Suspect]
     Route: 055
  2. FORADIL [Suspect]

REACTIONS (1)
  - BRONCHOSPASM [None]
